FAERS Safety Report 12778610 (Version 2)
Quarter: 2017Q3

REPORT INFORMATION
  Report Type: Spontaneous
  Country: US (occurrence: US)
  Receive Date: 20160926
  Receipt Date: 20170921
  Transmission Date: 20171127
  Serious: No
  Sender: FDA-Public Use
  Company Number: US-AUROBINDO-AUR-APL-2015-09244

PATIENT
  Sex: Female

DRUGS (1)
  1. ALENDRONATE SODIUM TABLETS USP 70MG [Suspect]
     Active Substance: ALENDRONATE SODIUM
     Indication: OSTEOPOROSIS
     Dosage: 70 MG, WEEK
     Route: 065

REACTIONS (4)
  - Arthralgia [Unknown]
  - Myalgia [Unknown]
  - Emotional distress [Unknown]
  - White blood cell count increased [Unknown]
